FAERS Safety Report 7921720 (Version 7)
Quarter: 2015Q3

REPORT INFORMATION
  Report Type: Spontaneous
  Country: US (occurrence: US)
  Receive Date: 20110429
  Receipt Date: 20150923
  Transmission Date: 20151125
  Serious: Yes (Other)
  Sender: FDA-Public Use
  Company Number: US-ASTRAZENECA-2010SE49759

PATIENT
  Age: 621 Month
  Sex: Female
  Weight: 94.8 kg

DRUGS (15)
  1. DEPAKOTE [Concomitant]
     Active Substance: DIVALPROEX SODIUM
     Indication: LOSS OF CONSCIOUSNESS
     Route: 048
     Dates: start: 201506
  2. TROSPIUM CHLORIDE. [Concomitant]
     Active Substance: TROSPIUM CHLORIDE
     Indication: HYPERTONIC BLADDER
     Route: 048
     Dates: start: 2011
  3. SUCRALFATE. [Concomitant]
     Active Substance: SUCRALFATE
     Indication: ABDOMINAL PAIN UPPER
     Route: 048
     Dates: start: 2012
  4. LORTAB [Concomitant]
     Active Substance: ACETAMINOPHEN\HYDROCODONE BITARTRATE
     Indication: PAIN IN EXTREMITY
     Route: 048
     Dates: start: 2008
  5. DEPAKOTE [Concomitant]
     Active Substance: DIVALPROEX SODIUM
     Indication: LOSS OF CONSCIOUSNESS
     Route: 048
  6. CHLOR-KON [Concomitant]
     Indication: MINERAL SUPPLEMENTATION
     Dosage: DAILY
     Route: 048
  7. CLONAZEPAM. [Concomitant]
     Active Substance: CLONAZEPAM
     Indication: RESTLESS LEGS SYNDROME
     Route: 048
     Dates: start: 2007
  8. NEXIUM [Suspect]
     Active Substance: ESOMEPRAZOLE MAGNESIUM
     Indication: GASTROOESOPHAGEAL REFLUX DISEASE
     Route: 048
  9. NEXIUM [Suspect]
     Active Substance: ESOMEPRAZOLE MAGNESIUM
     Indication: GASTROOESOPHAGEAL REFLUX DISEASE
     Route: 048
     Dates: start: 2005
  10. MIRABEGRON [Concomitant]
     Active Substance: MIRABEGRON
     Indication: HYPERTONIC BLADDER
     Route: 048
     Dates: start: 2011
  11. NEXIUM [Suspect]
     Active Substance: ESOMEPRAZOLE MAGNESIUM
     Indication: GASTROOESOPHAGEAL REFLUX DISEASE
     Route: 048
  12. NEXIUM [Suspect]
     Active Substance: ESOMEPRAZOLE MAGNESIUM
     Indication: GASTROOESOPHAGEAL REFLUX DISEASE
     Route: 048
     Dates: end: 20150517
  13. PAROXETINE [Concomitant]
     Active Substance: PAROXETINE\PAROXETINE HYDROCHLORIDE
     Indication: NERVOUSNESS
     Route: 048
     Dates: start: 2013
  14. ZYRTEC [Concomitant]
     Active Substance: CETIRIZINE HYDROCHLORIDE
     Indication: MULTIPLE ALLERGIES
     Dosage: GENERIC, 10 MG DAILY
     Route: 048
     Dates: start: 2013
  15. AMLODIPINE [Concomitant]
     Active Substance: AMLODIPINE BESYLATE
     Indication: BLOOD PRESSURE ABNORMAL
     Route: 048
     Dates: start: 201503

REACTIONS (23)
  - Head injury [Unknown]
  - Dysarthria [Not Recovered/Not Resolved]
  - Dysphagia [Unknown]
  - Feeding disorder [Unknown]
  - Visual impairment [Unknown]
  - Chest pain [Unknown]
  - Cardiac contusion [Unknown]
  - Pharyngeal disorder [Unknown]
  - Malaise [Unknown]
  - Cerebrovascular insufficiency [Unknown]
  - Loss of consciousness [Unknown]
  - Throat irritation [Unknown]
  - Dyspepsia [Unknown]
  - Headache [Unknown]
  - Road traffic accident [Unknown]
  - Tendon rupture [Unknown]
  - Eye disorder [Unknown]
  - Renal disorder [Unknown]
  - Drug dose omission [Unknown]
  - Hypertension [Unknown]
  - Gastrooesophageal reflux disease [Unknown]
  - Cough [Unknown]
  - Abdominal pain upper [Unknown]

NARRATIVE: CASE EVENT DATE: 201501
